FAERS Safety Report 18598762 (Version 1)
Quarter: 2020Q4

REPORT INFORMATION
  Report Type: Other
  Country: IT (occurrence: IT)
  Receive Date: 20201210
  Receipt Date: 20201210
  Transmission Date: 20210114
  Serious: Yes (Other)
  Sender: FDA-Public Use
  Company Number: IT-ACI HEALTHCARE LIMITED-2101807

PATIENT
  Age: 40 Year
  Sex: Female

DRUGS (5)
  1. TOPIRAMATE. [Concomitant]
     Active Substance: TOPIRAMATE
     Route: 065
  2. LAMOTRIGINE. [Concomitant]
     Active Substance: LAMOTRIGINE
     Route: 065
  3. PERAMPANEL [Concomitant]
     Active Substance: PERAMPANEL
     Route: 065
  4. LEVETIRACETAM. [Suspect]
     Active Substance: LEVETIRACETAM
     Indication: GENERALISED TONIC-CLONIC SEIZURE
     Route: 065
  5. ZONISAMIDE. [Concomitant]
     Active Substance: ZONISAMIDE
     Route: 065

REACTIONS (1)
  - Drug ineffective [Unknown]
